FAERS Safety Report 9579444 (Version 2)
Quarter: 2013Q4

REPORT INFORMATION
  Report Type: Spontaneous
  Country: US (occurrence: US)
  Receive Date: 20131001
  Receipt Date: 20131001
  Transmission Date: 20140711
  Serious: No
  Sender: FDA-Public Use
  Company Number: US-AMGEN-USASP2013006909

PATIENT
  Age: 67 Year
  Sex: Female
  Weight: 63.49 kg

DRUGS (13)
  1. ENBREL [Suspect]
     Indication: PSORIATIC ARTHROPATHY
     Dosage: 50 MG, QWK
     Route: 058
  2. CENTRUM                            /02217401/ [Concomitant]
     Dosage: UNK
  3. CALTRATE                           /00944201/ [Concomitant]
     Dosage: 600 UNK, UNK
  4. XALATAN [Concomitant]
     Dosage: SOL 0.005%
  5. MELOXICAM [Concomitant]
     Dosage: 7.5 MG, UNK
  6. SYNTHROID [Concomitant]
     Dosage: 100 MUG, UNK
  7. SIMVASTATIN [Concomitant]
     Dosage: 20 MG, UNK
  8. VALTREX [Concomitant]
     Dosage: 500 MG, UNK
  9. ESTROPIPATE [Concomitant]
     Dosage: 1.5 MG, UNK
  10. HYDROCODONE/APAP [Concomitant]
     Dosage: 5-500 MG
  11. I-VITE [Concomitant]
     Dosage: UNK
  12. SULFASALAZIN [Concomitant]
     Dosage: 500 MG, UNK
  13. FISH OIL [Concomitant]
     Dosage: UNK

REACTIONS (2)
  - Nasopharyngitis [Unknown]
  - Sinusitis [Unknown]
